FAERS Safety Report 25869169 (Version 3)
Quarter: 2025Q4

REPORT INFORMATION
  Report Type: Report from Study
  Country: US (occurrence: US)
  Receive Date: 20251001
  Receipt Date: 20251124
  Transmission Date: 20260118
  Serious: Yes (Other)
  Sender: ABBVIE
  Company Number: US-ABBVIE-6481183

PATIENT
  Age: 69 Year
  Sex: Female

DRUGS (8)
  1. RINVOQ [Suspect]
     Active Substance: UPADACITINIB
     Indication: Giant cell arteritis
     Dosage: STOPPED IN 2025
     Route: 048
     Dates: start: 20250721
  2. RINVOQ [Suspect]
     Active Substance: UPADACITINIB
     Indication: Giant cell arteritis
     Dosage: STARTED IN 2025
     Route: 048
     Dates: start: 2025
  3. PANTOPRAZOLE [Concomitant]
     Active Substance: PANTOPRAZOLE
     Indication: Product used for unknown indication
  4. PREDNISONE [Concomitant]
     Active Substance: PREDNISONE
     Indication: Product used for unknown indication
  5. PREDNISONE [Concomitant]
     Active Substance: PREDNISONE
     Indication: Product used for unknown indication
  6. SULFAMETHOXAZOLE [Concomitant]
     Active Substance: SULFAMETHOXAZOLE
     Indication: Product used for unknown indication
     Dosage: TIME INTERVAL: 0.33333333 WEEKS
  7. BENAZEPRIL [Concomitant]
     Active Substance: BENAZEPRIL HYDROCHLORIDE
     Indication: Product used for unknown indication
  8. CALCIUM\VITAMIN D [Concomitant]
     Active Substance: CALCIUM\VITAMIN D
     Indication: Product used for unknown indication

REACTIONS (6)
  - Gastrointestinal obstruction [Recovering/Resolving]
  - Gastrointestinal motility disorder [Not Recovered/Not Resolved]
  - Head injury [Recovering/Resolving]
  - Volvulus [Recovering/Resolving]
  - Headache [Not Recovered/Not Resolved]
  - Adhesion [Recovering/Resolving]

NARRATIVE: CASE EVENT DATE: 20250101
